FAERS Safety Report 21336109 (Version 3)
Quarter: 2022Q4

REPORT INFORMATION
  Report Type: Spontaneous
  Country: US (occurrence: US)
  Receive Date: 20220915
  Receipt Date: 20221226
  Transmission Date: 20230113
  Serious: No
  Sender: FDA-Public Use
  Company Number: US-BRISTOL-MYERS SQUIBB COMPANY-2022-105933

PATIENT
  Age: 77 Year
  Sex: Female

DRUGS (1)
  1. REVLIMID [Suspect]
     Active Substance: LENALIDOMIDE
     Indication: Plasma cell myeloma
     Dosage: 1-21 OF EACH 28 DAY CYCLE
     Route: 048
     Dates: start: 20220913

REACTIONS (5)
  - Pollakiuria [Unknown]
  - Pain [Unknown]
  - Dry mouth [Unknown]
  - Hyperhidrosis [Unknown]
  - Chills [Unknown]
